FAERS Safety Report 23427327 (Version 1)
Quarter: 2024Q1

REPORT INFORMATION
  Report Type: Spontaneous
  Country: US (occurrence: US)
  Receive Date: 20240122
  Receipt Date: 20240122
  Transmission Date: 20240410
  Serious: Yes (Other)
  Sender: FDA-Public Use
  Company Number: US-BAUSCH-BL-2024-000751

PATIENT
  Age: 47 Year
  Sex: Female

DRUGS (5)
  1. DEXAMETHASONE [Suspect]
     Active Substance: DEXAMETHASONE
     Indication: Astrocytoma, low grade
     Route: 065
     Dates: start: 201509, end: 2015
  2. HYDROCORTISONE [Suspect]
     Active Substance: HYDROCORTISONE
     Indication: Astrocytoma, low grade
     Dosage: 20 MG EVERY MORNING AND 10 MG EVERY EVENING
     Route: 065
     Dates: start: 2015, end: 2015
  3. HYDROCORTISONE [Suspect]
     Active Substance: HYDROCORTISONE
     Dosage: 20 MG EVERY MORNING AND 10 MG EVERY EVENING FOR 14 DAYS, DECREASED BY 5 MG EVERY 2 WEEKS
     Route: 065
     Dates: start: 2015, end: 201512
  4. DEXAMETHASONE [Suspect]
     Active Substance: DEXAMETHASONE
     Indication: Astrocytoma, low grade
     Route: 048
     Dates: start: 201507, end: 2015
  5. DEXAMETHASONE [Suspect]
     Active Substance: DEXAMETHASONE
     Dosage: DECREASED
     Route: 048
     Dates: start: 2015, end: 2015

REACTIONS (6)
  - Osteonecrosis [Unknown]
  - Adrenal insufficiency [Unknown]
  - Irritability [Unknown]
  - Mania [Unknown]
  - Weight increased [Unknown]
  - Increased appetite [Unknown]

NARRATIVE: CASE EVENT DATE: 20150101
